FAERS Safety Report 8539068-X (Version None)
Quarter: 2012Q3

REPORT INFORMATION
  Report Type: 
  Country: None (occurrence: None)
  Receive Date: 20120726
  Receipt Date: 20120724
  Transmission Date: 20120928
  Serious: Yes (Other)
  Sender: FDA-Public Use
  Company Number: PHEH2012US013832

PATIENT
  Sex: Female

DRUGS (3)
  1. TEGRETOL [Suspect]
     Indication: GRAND MAL CONVULSION
     Dosage: 400 MG, BID
     Route: 048
  2. TOPAMAX [Concomitant]
     Dosage: UNK UKN, UNK
  3. METFORMIN HYDROCHLORIDE [Concomitant]
     Dosage: UNK UKN, UNK

REACTIONS (1)
  - CONVULSION [None]
